FAERS Safety Report 4641424-7 (Version None)
Quarter: 2005Q2

REPORT INFORMATION
  Report Type: 
  Country: None (occurrence: None)
  Receive Date: 20050420
  Receipt Date: 20050420
  Transmission Date: 20051028
  Serious: Yes (Other)
  Sender: FDA-Public Use
  Company Number: None

PATIENT
  Age: 34 Year
  Sex: Male
  Weight: 76.2043 kg

DRUGS (2)
  1. PAXIL CR [Suspect]
     Indication: OFF LABEL USE
     Dosage: 1 PILL DAILY
     Dates: start: 20030320, end: 20050329
  2. PAXIL CR [Suspect]
     Indication: SEXUAL DYSFUNCTION
     Dosage: 1 PILL DAILY
     Dates: start: 20030320, end: 20050329

REACTIONS (5)
  - CRYING [None]
  - DEPRESSION [None]
  - DRUG WITHDRAWAL SYNDROME [None]
  - IMPAIRED WORK ABILITY [None]
  - SUICIDAL IDEATION [None]
